FAERS Safety Report 4684833-2 (Version None)
Quarter: 2005Q2

REPORT INFORMATION
  Report Type: 
  Country: None (occurrence: None)
  Receive Date: 20050531
  Receipt Date: 20041201
  Transmission Date: 20051028
  Serious: Yes (Other)
  Sender: FDA-Public Use
  Company Number: USA041284924

PATIENT
  Age: 55 Year
  Sex: Male
  Weight: 88 kg

DRUGS (13)
  1. ZYPREXA [Suspect]
     Indication: ANXIETY
     Dosage: 5 MG/2 DAY
     Dates: start: 20030101, end: 20041126
  2. XANAX (ALPRAZOLAM DUM) [Concomitant]
  3. PRINIVIL [Concomitant]
  4. APO-METOPROLOL (METOPROLOL TARTRATE) [Concomitant]
  5. DIOVAN [Concomitant]
  6. HYDROCHLOROTHIAZIDE [Concomitant]
  7. NEXIUM [Concomitant]
  8. METHADONE HCL [Concomitant]
  9. OXYCONTIN [Concomitant]
  10. IRON [Concomitant]
  11. ADVAIR DISKUS 100/50 [Concomitant]
  12. ZOCOR (SIMVASTATIN RATIOPHARM) [Concomitant]
  13. ASPIRIN [Concomitant]

REACTIONS (3)
  - NIGHTMARE [None]
  - OEDEMA PERIPHERAL [None]
  - WEIGHT INCREASED [None]
